FAERS Safety Report 8684097 (Version 2)
Quarter: 2012Q4

REPORT INFORMATION
  Report Type: 
  Country: US (occurrence: US)
  Receive Date: 20120726
  Receipt Date: 20121116
  Transmission Date: 20130627
  Serious: Yes (Hospitalization)
  Sender: FDA-Public Use
  Company Number: US-BAYER-2012-073881

PATIENT
  Age: 27 Year
  Sex: Female
  Weight: 158.73 kg

DRUGS (17)
  1. OCELLA [Suspect]
     Indication: CONTRACEPTION
     Dosage: UNK
     Dates: start: 20070617, end: 200906
  2. OCELLA [Suspect]
     Indication: ACNE
  3. OCELLA [Suspect]
     Indication: PREMENSTRUAL SYNDROME
  4. YASMIN [Suspect]
     Indication: CONTRACEPTION
     Dosage: UNK
     Dates: start: 2006
  5. YASMIN [Suspect]
     Indication: ACNE
  6. YASMIN [Suspect]
     Indication: PREMENSTRUAL SYNDROME
  7. CYMBALTA [Concomitant]
     Dosage: 60 mg, daily
     Dates: start: 20090710
  8. CYMBALTA [Concomitant]
     Dosage: UNK
     Dates: start: 2006, end: 2011
  9. PROVENTIL HFA [Concomitant]
     Dosage: 2 puffs, 2-3 times daily
     Dates: start: 20090710
  10. ZANTAC [Concomitant]
     Dosage: 150 mg, daily
     Dates: start: 20090710
  11. TYLENOL ARTHRITIS [Concomitant]
     Dosage: 1250 mg, daily
     Dates: start: 20090710
  12. HYDROCORTISONE [HYDROCORTISONE] [Concomitant]
     Dosage: 2 times, daily
     Dates: start: 20090710
  13. PROCARDIA [Concomitant]
     Dosage: UNK
     Dates: start: 20090710
  14. ANTIBIOTICS [Concomitant]
  15. VITAMIN C [Concomitant]
  16. ANTI-ASTHMATICS [Concomitant]
     Dosage: UNK
     Dates: start: 1995
  17. BLOOD PRESSURE MEDICATION (NOS) [Concomitant]

REACTIONS (4)
  - Pulmonary embolism [None]
  - Injury [None]
  - Pain [None]
  - Pain [None]
